FAERS Safety Report 10102907 (Version 1)
Quarter: 2014Q2

REPORT INFORMATION
  Report Type: Spontaneous
  Country: GB (occurrence: GB)
  Receive Date: 20140424
  Receipt Date: 20140424
  Transmission Date: 20141212
  Serious: Yes (Hospitalization)
  Sender: FDA-Public Use
  Company Number: PHHY2014GB046694

PATIENT
  Age: 70 Year
  Sex: Female

DRUGS (15)
  1. HALOPERIDOL [Suspect]
     Indication: ANXIETY
     Dosage: 500 UG, BID
     Route: 048
  2. CALCEOS [Concomitant]
     Dosage: 1 DF, QD
  3. METFORMIN [Concomitant]
     Dosage: 1 G, BID
     Route: 048
  4. VITAMIN B COMPOUND                 /00003501/ [Concomitant]
     Dosage: 1 DF, BID
  5. ALENDRONIC ACID [Concomitant]
     Dosage: 70 MG, UNK
  6. ALLOPURINOL [Concomitant]
     Dosage: 300 MG, QD
     Route: 048
  7. CARBOCISTEINE [Concomitant]
     Dosage: 750 MG, BID
     Dates: start: 20140320
  8. FENTANYL [Concomitant]
     Dosage: 200 UG, UNK
     Route: 062
  9. FUROSEMIDE [Concomitant]
     Dosage: 40 MG, QD
  10. LANSOPRAZOLE [Concomitant]
     Dosage: 30 MG, QD
  11. LISINOPRIL [Concomitant]
     Dosage: 20 MG, QD
  12. NAPROXEN [Concomitant]
     Dosage: 250 MG, BID
  13. SERTRALINE [Concomitant]
     Dosage: 50 MG, QD
  14. SIMVASTATIN [Concomitant]
     Dosage: 40 MG, QD, AT NIGHT
  15. TIOTROPIUM [Concomitant]
     Dosage: 18 UG, QD
     Route: 050

REACTIONS (1)
  - Atrial flutter [Unknown]
